FAERS Safety Report 13681773 (Version 3)
Quarter: 2017Q3

REPORT INFORMATION
  Report Type: Spontaneous
  Country: MX (occurrence: MX)
  Receive Date: 20170623
  Receipt Date: 20170803
  Transmission Date: 20171127
  Serious: Yes (Life-Threatening, Hospitalization, Other)
  Sender: FDA-Public Use
  Company Number: PHHY2017MX089925

PATIENT
  Age: 49 Year
  Sex: Female

DRUGS (3)
  1. GILENYA [Suspect]
     Active Substance: FINGOLIMOD HYDROCHLORIDE
     Indication: MULTIPLE SCLEROSIS
     Dosage: 0.5 MG, QD
     Route: 048
     Dates: start: 2012
  2. VITAMIN D3 [Concomitant]
     Active Substance: CHOLECALCIFEROL
     Indication: PRODUCT USED FOR UNKNOWN INDICATION
     Dosage: 1800 UI, QD
     Route: 065
  3. LOSARTAN. [Concomitant]
     Active Substance: LOSARTAN
     Indication: HYPERTENSION
     Dosage: UNK UNK, QD
     Route: 065

REACTIONS (8)
  - Thrombocytopenia [Unknown]
  - Ecchymosis [Unknown]
  - Petechiae [Unknown]
  - Leukopenia [Unknown]
  - Platelet count decreased [Recovering/Resolving]
  - Vaginal haemorrhage [Unknown]
  - Thrombocytopenic purpura [Unknown]
  - Haematuria [Unknown]
